FAERS Safety Report 8813648 (Version 1)
Quarter: 2012Q4

REPORT INFORMATION
  Report Type: 
  Country: AU (occurrence: AU)
  Receive Date: 20120927
  Receipt Date: 20120927
  Transmission Date: 20130627
  Serious: Yes (Hospitalization, Other)
  Sender: FDA-Public Use
  Company Number: PHHY2012AU084157

PATIENT
  Sex: Female

DRUGS (1)
  1. ACLASTA [Suspect]
     Route: 042
     Dates: start: 20110902

REACTIONS (1)
  - Cardiac disorder [Unknown]
